FAERS Safety Report 20058781 (Version 1)
Quarter: 2021Q4

REPORT INFORMATION
  Report Type: Spontaneous
  Country: US (occurrence: None)
  Receive Date: 20211111
  Receipt Date: 20211111
  Transmission Date: 20220303
  Serious: No
  Sender: FDA-Public Use
  Company Number: None

PATIENT
  Sex: Male
  Weight: 74.61 kg

DRUGS (17)
  1. ERLEADA [Suspect]
     Active Substance: APALUTAMIDE
     Indication: Prostate cancer
     Dosage: FREQUENCY : DAILY;?
     Route: 048
     Dates: start: 20210419
  2. ALLOPURINOL [Concomitant]
     Active Substance: ALLOPURINOL
  3. CALAN SR [Concomitant]
     Active Substance: VERAPAMIL HYDROCHLORIDE
  4. COENZYME Q10 [Concomitant]
     Active Substance: DIETARY SUPPLEMENT\UBIDECARENONE
  5. COZAAR [Concomitant]
     Active Substance: LOSARTAN POTASSIUM
  6. GARLIC [Concomitant]
     Active Substance: GARLIC
  7. MAGNESIUM [Concomitant]
     Active Substance: MAGNESIUM
  8. MELATONIN [Concomitant]
     Active Substance: MELATONIN
  9. NICOTINAMIDE [Concomitant]
     Active Substance: NIACINAMIDE
  10. OMEGA-3 FATTY ACIDS [Concomitant]
     Active Substance: OMEGA-3 FATTY ACIDS
  11. PRAVASTATIN [Concomitant]
     Active Substance: PRAVASTATIN
  12. QUERCETIN [Concomitant]
     Active Substance: QUERCETIN
  13. VERELAN [Concomitant]
     Active Substance: VERAPAMIL HYDROCHLORIDE
  14. VITAMIN C [Concomitant]
     Active Substance: ASCORBIC ACID
  15. VITAMIN D [Concomitant]
     Active Substance: VITAMIN D NOS
  16. XANAX [Concomitant]
     Active Substance: ALPRAZOLAM
  17. ZINC [Concomitant]
     Active Substance: ZINC

REACTIONS (2)
  - Rash [None]
  - Alopecia [None]
